FAERS Safety Report 17330315 (Version 1)
Quarter: 2020Q1

REPORT INFORMATION
  Report Type: Spontaneous
  Country: US (occurrence: US)
  Receive Date: 20200128
  Receipt Date: 20200128
  Transmission Date: 20200409
  Serious: No
  Sender: FDA-Public Use
  Company Number: US-SA-2020SA020993

PATIENT
  Age: 78 Year
  Sex: Female

DRUGS (2)
  1. TOUJEO MAX [Suspect]
     Active Substance: INSULIN GLARGINE
     Dosage: 44 IU
     Route: 065
     Dates: start: 2019
  2. TOUJEO MAX [Suspect]
     Active Substance: INSULIN GLARGINE
     Dosage: 15-20 UNITS
     Route: 065

REACTIONS (2)
  - Blood glucose abnormal [Unknown]
  - Wrong dose [Unknown]
